FAERS Safety Report 12401550 (Version 1)
Quarter: 2016Q2

REPORT INFORMATION
  Report Type: Spontaneous
  Country: KR (occurrence: KR)
  Receive Date: 20160525
  Receipt Date: 20160525
  Transmission Date: 20160815
  Serious: Yes (Other)
  Sender: FDA-Public Use
  Company Number: KR-VIIV HEALTHCARE LIMITED-KR2016GSK071036

PATIENT
  Age: 43 Year
  Sex: Male

DRUGS (2)
  1. LAMIVUDINE. [Suspect]
     Active Substance: LAMIVUDINE
     Indication: HEPATITIS B
     Dosage: UNK
  2. ADEFOVIR DIPIVOXIL. [Suspect]
     Active Substance: ADEFOVIR DIPIVOXIL
     Indication: HEPATITIS B
     Dosage: 10 MG, QD

REACTIONS (23)
  - Hypophosphataemia [Recovered/Resolved]
  - Proteinuria [Recovered/Resolved]
  - Drug ineffective [Unknown]
  - Gait disturbance [Unknown]
  - Fanconi syndrome [Recovering/Resolving]
  - Hypokalaemia [Recovered/Resolved]
  - Hepatitis B DNA decreased [Unknown]
  - Osteomalacia [Recovered/Resolved]
  - Rib fracture [Unknown]
  - Nuclear magnetic resonance imaging abnormal [Recovered/Resolved]
  - Renal tubular disorder [Recovered/Resolved]
  - Metabolic acidosis [Unknown]
  - Blood alkaline phosphatase increased [Recovered/Resolved]
  - Osteocalcin increased [Recovered/Resolved]
  - Glycosuria [Recovered/Resolved]
  - Pain [Unknown]
  - Femoral neck fracture [Unknown]
  - Back pain [Unknown]
  - Arthralgia [Unknown]
  - Tenderness [Unknown]
  - Pathogen resistance [Unknown]
  - Renal impairment [Recovered/Resolved]
  - Bone density decreased [Recovering/Resolving]

NARRATIVE: CASE EVENT DATE: 2008
